FAERS Safety Report 9483255 (Version 2)
Quarter: 2013Q3

REPORT INFORMATION
  Report Type: Spontaneous
  Country: FR (occurrence: FR)
  Receive Date: 20130828
  Receipt Date: 20130828
  Transmission Date: 20140515
  Serious: Yes (Other)
  Sender: FDA-Public Use
  Company Number: FR-ABBOTT-13P-056-1120223-00

PATIENT
  Sex: Male

DRUGS (6)
  1. HUMIRA [Suspect]
     Indication: PSORIASIS
     Dates: start: 201201
  2. HUMIRA [Suspect]
     Indication: PSORIATIC ARTHROPATHY
  3. ARCOXIA [Suspect]
     Indication: SCIATICA
     Route: 048
     Dates: start: 20130401, end: 20130430
  4. IBUPROFEN [Suspect]
     Indication: SCIATICA
     Dates: start: 20130625, end: 20130708
  5. DAFALGAN [Suspect]
     Indication: SCIATICA
     Dates: start: 20130625, end: 20130708
  6. CORTICOIDS [Suspect]
     Indication: SCIATICA

REACTIONS (2)
  - Transaminases increased [Recovering/Resolving]
  - Gamma-glutamyltransferase increased [Recovering/Resolving]
